FAERS Safety Report 9922366 (Version 1)
Quarter: 2014Q1

REPORT INFORMATION
  Report Type: Spontaneous
  Country: US (occurrence: None)
  Receive Date: 20140224
  Receipt Date: 20140224
  Transmission Date: 20141002
  Serious: Yes (Disabling, Other)
  Sender: FDA-Public Use
  Company Number: None

PATIENT
  Age: 49 Year
  Sex: Female
  Weight: 48.99 kg

DRUGS (1)
  1. TOPAMAX [Suspect]
     Dosage: CURRENT - SEE BELOW??2 TABLETS TWICE DAILY
     Route: 048

REACTIONS (5)
  - Depression [None]
  - Dyspnoea [None]
  - Cognitive disorder [None]
  - Emotional disorder [None]
  - Rash [None]
